FAERS Safety Report 9785680 (Version 3)
Quarter: 2014Q1

REPORT INFORMATION
  Report Type: Report from Study
  Country: CA (occurrence: CA)
  Receive Date: 20131227
  Receipt Date: 20140220
  Transmission Date: 20141002
  Serious: Yes (Hospitalization)
  Sender: FDA-Public Use
  Company Number: CA-009507513-1312CAN009665

PATIENT
  Age: 54 Year
  Sex: Female
  Weight: 134.1 kg

DRUGS (9)
  1. BOCEPREVIR [Suspect]
     Indication: HEPATITIS C
     Dosage: 800 MG, TID
     Route: 048
     Dates: start: 20131030, end: 20131217
  2. BOCEPREVIR [Suspect]
     Dosage: UNK
     Route: 048
     Dates: start: 20131023
  3. RIBAVIRIN [Suspect]
     Indication: HEPATITIS C
     Dosage: 1400 MG, QD
     Route: 048
     Dates: start: 20131002, end: 20131217
  4. INTRON A [Suspect]
     Indication: HEPATITIS C
     Dosage: 150 MICROGRAM, QW
     Route: 058
     Dates: start: 20131002, end: 20131212
  5. ELTROXIN [Concomitant]
     Indication: HYPOTHYROIDISM
     Dosage: 100 MICROGRAM, QD
     Route: 048
     Dates: start: 2003
  6. TECTA [Concomitant]
     Indication: GASTROOESOPHAGEAL REFLUX DISEASE
     Dosage: 40 MG, QD
     Route: 048
     Dates: start: 20131030
  7. MAXERAN [Concomitant]
     Indication: NAUSEA
     Dosage: 10 MG, TID
     Route: 048
     Dates: start: 20131130
  8. VITAMIN D (UNSPECIFIED) [Concomitant]
     Indication: ROUTINE HEALTH MAINTENANCE
     Dosage: 2000 IU/ML PO QD
     Route: 048
     Dates: start: 201308
  9. CALCIUM (UNSPECIFIED) [Concomitant]
     Indication: ROUTINE HEALTH MAINTENANCE
     Dosage: 1000 MG PO QD
     Route: 048
     Dates: start: 201308

REACTIONS (5)
  - Dyspnoea [Unknown]
  - Jaundice [Unknown]
  - Pneumonia [Recovered/Resolved]
  - Febrile neutropenia [Recovered/Resolved]
  - Sepsis [Recovered/Resolved]
